FAERS Safety Report 17832102 (Version 1)
Quarter: 2020Q2

REPORT INFORMATION
  Report Type: Spontaneous
  Country: US (occurrence: US)
  Receive Date: 20200527
  Receipt Date: 20200527
  Transmission Date: 20200714
  Serious: No
  Sender: FDA-Public Use
  Company Number: US-ROCHE-2547016

PATIENT
  Age: 51 Year
  Sex: Female
  Weight: 51.5 kg

DRUGS (2)
  1. OCREVUS [Suspect]
     Active Substance: OCRELIZUMAB
     Indication: RELAPSING-REMITTING MULTIPLE SCLEROSIS
     Dosage: ONGOING:NO
     Route: 042
     Dates: start: 20190214, end: 20190228
  2. OCREVUS [Suspect]
     Active Substance: OCRELIZUMAB
     Dosage: ONGOING:YES
     Route: 042
     Dates: start: 20190827

REACTIONS (1)
  - Migraine [Unknown]
